FAERS Safety Report 5453217-1 (Version None)
Quarter: 2007Q3

REPORT INFORMATION
  Report Type: 
  Country: None (occurrence: None)
  Receive Date: 20070914
  Receipt Date: 20070911
  Transmission Date: 20080115
  Serious: Yes (Other)
  Sender: FDA-Public Use
  Company Number: BE-MERCK-0709BEL00022

PATIENT
  Age: 47 Year
  Sex: Male

DRUGS (7)
  1. SINGULAIR [Suspect]
     Indication: ASTHMA
     Route: 048
     Dates: start: 20010401, end: 20010101
  2. METHYLPREDNISOLONE [Concomitant]
     Indication: ASTHMA
     Route: 048
     Dates: start: 20000101
  3. METHYLPREDNISOLONE [Concomitant]
     Route: 048
     Dates: start: 19980101, end: 20000101
  4. METHYLPREDNISOLONE [Concomitant]
     Route: 048
     Dates: start: 19970101, end: 19980101
  5. METHYLPREDNISOLONE [Concomitant]
     Route: 048
  6. ANTIMICROBIAL (UNSPECIFIED) [Concomitant]
     Indication: CHRONIC SINUSITIS
     Route: 065
     Dates: start: 20010301
  7. ANTIMICROBIAL (UNSPECIFIED) [Concomitant]
     Indication: MAXILLARY ANTRUM OPERATION
     Route: 065
     Dates: start: 20010301

REACTIONS (1)
  - ALLERGIC GRANULOMATOUS ANGIITIS [None]
